FAERS Safety Report 17401765 (Version 3)
Quarter: 2020Q2

REPORT INFORMATION
  Report Type: Report from Study
  Country: AT (occurrence: AT)
  Receive Date: 20200211
  Receipt Date: 20200525
  Transmission Date: 20200713
  Serious: Yes (Other)
  Sender: FDA-Public Use
  Company Number: AT-ROCHE-2520357

PATIENT
  Age: 54 Year
  Sex: Female
  Weight: 75 kg

DRUGS (17)
  1. OCTENISEPT [OCTENIDINE HYDROCHLORIDE;PHENOXYETHANOL] [Concomitant]
     Indication: ONYCHOLYSIS
     Route: 065
     Dates: start: 20180725
  2. DEXAMETHASONE. [Concomitant]
     Active Substance: DEXAMETHASONE
     Route: 065
     Dates: start: 20190628, end: 20190830
  3. PANTOLOC [PANTOPRAZOLE] [Concomitant]
     Active Substance: PANTOPRAZOLE SODIUM
     Dosage: ONGOING = CHECKED
     Route: 065
     Dates: start: 20191011
  4. NAVELBINE [Suspect]
     Active Substance: VINORELBINE TARTRATE
     Indication: HER2 POSITIVE BREAST CANCER
     Dosage: RECENT DOSE: 28/OCT/2019
     Route: 048
     Dates: start: 20191011
  5. BEPANTHEN EYE [Concomitant]
     Indication: CONJUNCTIVITIS
     Route: 065
     Dates: start: 20180619
  6. KYTRIL [Concomitant]
     Active Substance: GRANISETRON HYDROCHLORIDE
     Dosage: ONGOING = NOT CHECKED
     Route: 065
     Dates: start: 20190628, end: 20190830
  7. TRASTUZUMAB EMTANSINE [Suspect]
     Active Substance: ADO-TRASTUZUMAB EMTANSINE
     Indication: HER2 POSITIVE BREAST CANCER
     Dosage: DOSE ON 17/MAY/2019?MOST RECENT DOSE PRIOR TO THE EVENT: 28/JUN/2019
     Route: 042
     Dates: start: 20190131, end: 20190517
  8. BEPANTHENE [Concomitant]
     Active Substance: DEXPANTHENOL
     Indication: ONYCHOLYSIS
     Route: 065
     Dates: start: 20180725
  9. XGEVA [Concomitant]
     Active Substance: DENOSUMAB
     Route: 065
     Dates: start: 20191219
  10. PERTUZUMAB. [Suspect]
     Active Substance: PERTUZUMAB
     Indication: HER2 POSITIVE BREAST CANCER
     Dosage: MOST RECENT DOSE PRIOR TO THE EVENT: 23/APR/2018
     Route: 042
     Dates: start: 20180328, end: 20180328
  11. CAL D VITA [Concomitant]
     Dosage: ONGOING = CHECKED
     Route: 065
     Dates: start: 20190425
  12. ENTEROBENE [Concomitant]
     Route: 065
     Dates: start: 20200108
  13. TRASTUZUMAB. [Suspect]
     Active Substance: TRASTUZUMAB
     Indication: HER2 POSITIVE BREAST CANCER
     Dosage: MOST RECENT DOSE PRIOR TO THE EVENT: 26/JUN/2018
     Route: 042
     Dates: start: 20180328, end: 20180328
  14. TAXOL [Suspect]
     Active Substance: PACLITAXEL
     Indication: HER2 POSITIVE BREAST CANCER
     Dosage: WEEKLY?RECENT DOSE ON 09/APR/2018
     Route: 042
     Dates: start: 20180328, end: 20180409
  15. NERATINIB [Suspect]
     Active Substance: NERATINIB
     Indication: BREAST CANCER
     Route: 048
     Dates: start: 20200108
  16. CAPECITABINE. [Suspect]
     Active Substance: CAPECITABINE
     Indication: BREAST CANCER
     Dosage: OTHER
     Route: 048
     Dates: start: 20191126, end: 20191218
  17. ABRAXANE [Suspect]
     Active Substance: PACLITAXEL
     Indication: HER2 POSITIVE BREAST CANCER
     Dosage: DOSE ON 08/MAY/2018?MOST RECENT DOSE PRIOR TO THE EVENT: 07/DEC/2018
     Route: 042
     Dates: start: 20180416

REACTIONS (2)
  - Breast cancer metastatic [Recovering/Resolving]
  - Pain of skin [Recovered/Resolved]

NARRATIVE: CASE EVENT DATE: 20190920
